FAERS Safety Report 6635648-7 (Version None)
Quarter: 2010Q1

REPORT INFORMATION
  Report Type: 
  Country: None (occurrence: None)
  Receive Date: 20100312
  Receipt Date: 20100312
  Transmission Date: 20100710
  Serious: No
  Sender: FDA-Public Use
  Company Number: None

PATIENT
  Age: 45 Year
  Sex: Female
  Weight: 96 kg

DRUGS (1)
  1. ATENOLOL [Suspect]
     Dosage: 25 MG EVERY DAY PO
     Route: 048
     Dates: start: 20091116, end: 20091208

REACTIONS (1)
  - ANAPHYLACTIC REACTION [None]
